FAERS Safety Report 9796718 (Version 3)
Quarter: 2014Q1

REPORT INFORMATION
  Report Type: Report from Study
  Country: US (occurrence: US)
  Receive Date: 20140103
  Receipt Date: 20140114
  Transmission Date: 20141002
  Serious: Yes (Hospitalization)
  Sender: FDA-Public Use
  Company Number: US-ACTELION-A-NJ2013-93214

PATIENT
  Age: 66 Year
  Sex: Male

DRUGS (3)
  1. VENTAVIS [Suspect]
     Indication: PULMONARY ARTERIAL HYPERTENSION
     Dosage: UNK
     Route: 055
  2. ADCIRCA [Concomitant]
  3. COUMADIN [Concomitant]

REACTIONS (6)
  - Fall [Unknown]
  - Dialysis [Unknown]
  - Bradycardia [Unknown]
  - Lethargy [Unknown]
  - Asthenia [Unknown]
  - Hypotension [Unknown]
